FAERS Safety Report 16832998 (Version 2)
Quarter: 2019Q3

REPORT INFORMATION
  Report Type: Spontaneous
  Country: DE (occurrence: DE)
  Receive Date: 20190920
  Receipt Date: 20190920
  Transmission Date: 20191005
  Serious: Yes (Life-Threatening, Hospitalization)
  Sender: FDA-Public Use
  Company Number: DE-PFIZER INC-2019391559

PATIENT
  Age: 43 Year
  Sex: Female

DRUGS (4)
  1. BUDESONIDE/FORMOTEROL [Concomitant]
     Indication: ASTHMA
     Dosage: UNK, 2X/DAY (FIXED-DOSE COMBINATION OF BUDESONIDE AND FORMOTEROL (320/9 UG TWICE DAILY))
  2. QUETIAPINE. [Suspect]
     Active Substance: QUETIAPINE
     Dosage: UNK (UNKNOWN DOSES)
  3. IBUPROFEN. [Suspect]
     Active Substance: IBUPROFEN
     Dosage: UNK (UNKNOWN DOSES,NON-STEROIDAL ANTI-INFLAMMATORY DRUGS )
  4. TIOTROPIUM [Concomitant]
     Active Substance: TIOTROPIUM
     Indication: ASTHMA
     Dosage: 18 UG, 2X/DAY

REACTIONS (3)
  - Suicide attempt [Unknown]
  - Asthma [Recovered/Resolved]
  - Toxicity to various agents [Recovered/Resolved]
